FAERS Safety Report 10309897 (Version 1)
Quarter: 2014Q3

REPORT INFORMATION
  Report Type: Spontaneous
  Country: US (occurrence: None)
  Receive Date: 20140715
  Receipt Date: 20140715
  Transmission Date: 20150326
  Serious: Yes (Hospitalization)
  Sender: FDA-Public Use
  Company Number: None

PATIENT
  Age: 64 Year
  Sex: Male
  Weight: 90.72 kg

DRUGS (5)
  1. ATORVASTATIN [Suspect]
     Active Substance: ATORVASTATIN
     Indication: TENDON RUPTURE
     Dosage: 1 TABLET QD ORAL
     Route: 048
  2. LOSARTAN [Concomitant]
     Active Substance: LOSARTAN
  3. DICLOFENAC [Suspect]
     Active Substance: DICLOFENAC
  4. ASA [Concomitant]
     Active Substance: ASPIRIN
  5. LOSARTAN [Suspect]
     Active Substance: LOSARTAN

REACTIONS (1)
  - Tendon rupture [None]

NARRATIVE: CASE EVENT DATE: 20140314
